FAERS Safety Report 5357526-6 (Version None)
Quarter: 2007Q2

REPORT INFORMATION
  Report Type: 
  Country: None (occurrence: None)
  Receive Date: 20070614
  Receipt Date: 20070601
  Transmission Date: 20071010
  Serious: Yes (Hospitalization, Other)
  Sender: FDA-Public Use
  Company Number: US-ELI_LILLY_AND_COMPANY-US200706000232

PATIENT
  Age: 71 Year
  Sex: Female

DRUGS (4)
  1. CYMBALTA [Suspect]
     Indication: CRYING
     Dosage: 20 MG, 2/D
     Dates: end: 20070512
  2. CYMBALTA [Interacting]
     Dosage: 30 MG, 2/D
     Dates: start: 20070531
  3. ARICEPT [Concomitant]
  4. SYNTHROID [Concomitant]

REACTIONS (8)
  - AGITATION [None]
  - ANOREXIA [None]
  - DRUG INTERACTION [None]
  - FALL [None]
  - GAIT DISTURBANCE [None]
  - INSOMNIA [None]
  - SOMNOLENCE [None]
  - UPPER LIMB FRACTURE [None]
